FAERS Safety Report 9891484 (Version 1)
Quarter: 2014Q1

REPORT INFORMATION
  Report Type: Spontaneous
  Country: US (occurrence: US)
  Receive Date: 20140212
  Receipt Date: 20140212
  Transmission Date: 20141002
  Serious: No
  Sender: FDA-Public Use
  Company Number: US-B.I. PHARMACEUTICALS,INC./RIDGEFIELD-2014-BI-05641BP

PATIENT
  Age: 56 Year
  Sex: Male
  Weight: 78.63 kg

DRUGS (13)
  1. ATROVENT INHALATION SOLUTION [Suspect]
     Indication: CHRONIC OBSTRUCTIVE PULMONARY DISEASE
     Dosage: 1 TO 2 PUFFS 3 TO 4 TIMES A DAY AS NEEDED
     Route: 055
     Dates: start: 2012
  2. ALBUTEROL SULFATE [Concomitant]
     Indication: CHRONIC OBSTRUCTIVE PULMONARY DISEASE
     Dosage: DOSE PER APPLICATION: 0.083 %
     Route: 055
  3. IPITROPIUM BROMIDE SOLUTION [Concomitant]
     Indication: CHRONIC OBSTRUCTIVE PULMONARY DISEASE
     Dosage: DOSE PER APPLICATION: 0.02%
     Route: 055
  4. CLONAZEPAM [Concomitant]
     Indication: POST-TRAUMATIC STRESS DISORDER
     Dosage: 3 MG
     Route: 048
  5. CLONAZEPAM [Concomitant]
     Indication: CRANIOCEREBRAL INJURY
  6. METHO CARBINAL [Concomitant]
     Indication: MUSCLE SPASMS
     Dosage: 3000 MG
     Route: 048
  7. IBUPROFEN [Concomitant]
     Indication: ANALGESIC THERAPY
     Route: 048
  8. HYDROXYZINE [Concomitant]
     Indication: ANXIETY
     Route: 048
  9. TAMAZEPAM [Concomitant]
     Indication: INSOMNIA
     Dosage: FORMULATION: CAPLET
     Route: 048
  10. TRAMADOL HLC [Concomitant]
     Indication: ANALGESIC THERAPY
     Route: 048
  11. CENTRUM [Concomitant]
     Indication: VITAMIN SUPPLEMENTATION
     Dosage: DOSE PER APP: 1 TABLET; DAILY DOSE: 1 TABLET
     Route: 048
  12. HYDROCODONE/ACETAMINOPHEN [Concomitant]
     Indication: ANALGESIC THERAPY
     Dosage: DOSE PER APPLICATION: 5/225 MG
     Route: 048
  13. PROAIR [Concomitant]
     Indication: CHRONIC OBSTRUCTIVE PULMONARY DISEASE
     Route: 055

REACTIONS (1)
  - Breath alcohol test positive [Recovered/Resolved]
